FAERS Safety Report 8003109-9 (Version None)
Quarter: 2011Q4

REPORT INFORMATION
  Report Type: 
  Country: None (occurrence: None)
  Receive Date: 20111222
  Receipt Date: 20111212
  Transmission Date: 20120403
  Serious: Yes (Hospitalization)
  Sender: FDA-Public Use
  Company Number: PHHY2010JP85232

PATIENT
  Sex: Male

DRUGS (10)
  1. ROHYPNOL [Concomitant]
     Dosage: UNK
     Route: 048
     Dates: start: 20101130, end: 20101130
  2. BROTIZOLAM [Concomitant]
     Dosage: UNK
     Route: 048
     Dates: start: 20101130, end: 20101130
  3. TEGRETOL [Suspect]
     Indication: BIPOLAR I DISORDER
     Dosage: 8600 MG, UNK
     Route: 048
     Dates: start: 20101130, end: 20101130
  4. DESYREL [Suspect]
     Dosage: 2250 MG, UNK
     Dates: start: 20101130
  5. NITRAZEPAM [Suspect]
     Dosage: 70 MG, UNK
     Route: 048
     Dates: start: 20101130
  6. SELEGILINE HCL [Suspect]
     Dosage: 195 MG, UNK
     Route: 048
     Dates: start: 20101130
  7. DEPAKENE [Suspect]
     Dosage: 16000 MG, UNK
     Dates: start: 20101130
  8. DOGMATYL [Concomitant]
     Dosage: UNK
     Dates: start: 20101130, end: 20101130
  9. SELEGILINE HCL [Suspect]
     Indication: DEPRESSION
     Dosage: 10 MG, DAILY
     Dates: start: 20050501
  10. ZYPREXA [Concomitant]
     Dosage: UNK
     Route: 048
     Dates: start: 20101130, end: 20101130

REACTIONS (18)
  - PNEUMONIA ASPIRATION [None]
  - INTENTIONAL OVERDOSE [None]
  - MYDRIASIS [None]
  - EYE MOVEMENT DISORDER [None]
  - HYPERTENSION [None]
  - HYPERHIDROSIS [None]
  - ALTERED STATE OF CONSCIOUSNESS [None]
  - CONFUSIONAL STATE [None]
  - MYOCLONUS [None]
  - HALLUCINATION, VISUAL [None]
  - SUICIDE ATTEMPT [None]
  - GRAND MAL CONVULSION [None]
  - PYREXIA [None]
  - COMA [None]
  - BUNDLE BRANCH BLOCK [None]
  - ANTICONVULSANT DRUG LEVEL INCREASED [None]
  - RESPIRATORY FAILURE [None]
  - RESTLESSNESS [None]
